FAERS Safety Report 13602523 (Version 2)
Quarter: 2017Q2

REPORT INFORMATION
  Report Type: Spontaneous
  Country: SK (occurrence: SK)
  Receive Date: 20170601
  Receipt Date: 20170608
  Transmission Date: 20170830
  Serious: Yes (Hospitalization)
  Sender: FDA-Public Use
  Company Number: SK-PFIZER INC-2017237466

PATIENT
  Age: 76 Year
  Sex: Female
  Weight: 85 kg

DRUGS (7)
  1. ATORVASTATIN CALCIUM. [Suspect]
     Active Substance: ATORVASTATIN CALCIUM
     Dosage: 20 MG, 1X/DAY, 0-0-1
  2. WARFARIN [Suspect]
     Active Substance: WARFARIN
     Indication: VENOUS THROMBOSIS
     Dosage: UNK
  3. TELMISARTAN. [Concomitant]
     Active Substance: TELMISARTAN
     Dosage: 80 MG, 1X/DAY, 1-0-0
  4. METOPROLOL. [Concomitant]
     Active Substance: METOPROLOL
     Dosage: 50 MG, 1-0-1/2
  5. FUROSEMID [Concomitant]
     Active Substance: FUROSEMIDE
     Dosage: 40 MG, 1X/DAY, 1-0-0
  6. FENOFIBRAT [Concomitant]
     Active Substance: FENOFIBRATE
     Dosage: 160 MG, 1X/DAY, 0-1-0
  7. GLIMEPIRID [Concomitant]
     Active Substance: GLIMEPIRIDE
     Dosage: 6 MG, 1X/DAY, 1-0-0

REACTIONS (6)
  - Haemorrhagic stroke [Unknown]
  - Facial nerve disorder [Unknown]
  - Hemiparesis [Unknown]
  - Aortic arteriosclerosis [Unknown]
  - Aphasia [Unknown]
  - Epistaxis [Unknown]
